FAERS Safety Report 11129029 (Version 3)
Quarter: 2015Q2

REPORT INFORMATION
  Report Type: Spontaneous
  Country: JP (occurrence: JP)
  Receive Date: 20150521
  Receipt Date: 20150624
  Transmission Date: 20150821
  Serious: Yes (Other)
  Sender: FDA-Public Use
  Company Number: JP-BAYER-2015-232947

PATIENT
  Age: 12 Month
  Sex: Female

DRUGS (3)
  1. IMMUNGLOBULIN [IMMUNOGLOBULIN HUMAN NORMAL] [Concomitant]
     Active Substance: HUMAN IMMUNOGLOBULIN G
     Indication: KAWASAKI^S DISEASE
     Dosage: UNK
     Route: 042
  2. BAYASPIRIN [Suspect]
     Active Substance: ASPIRIN
     Indication: KAWASAKI^S DISEASE
     Dosage: UNK
     Route: 048
  3. PREDNISOLONE [PREDNISOLONE] [Concomitant]
     Dosage: UNK

REACTIONS (3)
  - Allergic colitis [None]
  - Pyrexia [None]
  - Vomiting [None]
